FAERS Safety Report 5457887-3 (Version None)
Quarter: 2007Q3

REPORT INFORMATION
  Report Type: 
  Country: None (occurrence: None)
  Receive Date: 20070917
  Receipt Date: 20070907
  Transmission Date: 20080115
  Serious: Yes (Life-Threatening, Hospitalization)
  Sender: FDA-Public Use
  Company Number: 0707-598

PATIENT
  Age: 2 Day
  Sex: Male
  Weight: 1.05 kg

DRUGS (5)
  1. CUROSURF [Suspect]
     Indication: NEONATAL RESPIRATORY DISTRESS SYNDROME
     Dosage: ONCE, INTRATRACHEAL
     Route: 039
  2. DOPAMINE HCL [Concomitant]
  3. AMPICILLIN [Concomitant]
  4. GENTAMICIN [Concomitant]
  5. SODIUM ACETATE [Concomitant]

REACTIONS (2)
  - HAEMORRHAGE NEONATAL [None]
  - PULMONARY HAEMORRHAGE [None]
